FAERS Safety Report 9471565 (Version 1)
Quarter: 2013Q3

REPORT INFORMATION
  Report Type: Spontaneous
  Country: ES (occurrence: ES)
  Receive Date: 20130822
  Receipt Date: 20130822
  Transmission Date: 20140515
  Serious: Yes (Life-Threatening, Hospitalization)
  Sender: FDA-Public Use
  Company Number: ES-GILEAD-2013-0080210

PATIENT
  Age: 66 Year
  Sex: Female

DRUGS (14)
  1. AMBRISENTAN [Suspect]
     Indication: PULMONARY HYPERTENSION
     Dosage: 10 MG, QD
     Route: 048
     Dates: start: 20130514, end: 20130524
  2. AMBRISENTAN [Suspect]
     Dosage: 5 MG, QD
     Route: 048
     Dates: start: 2008, end: 20130514
  3. AZATIOPRINA                        /00001501/ [Concomitant]
     Dosage: 50MG PER DAY
     Route: 048
  4. ESCITALOPRAM [Concomitant]
     Route: 048
  5. PREDNISONA [Concomitant]
     Dosage: 5MG PER DAY
     Route: 048
  6. SILDENAFIL CITRATE [Concomitant]
     Dosage: 40MG THREE TIMES PER DAY
     Route: 048
  7. FUROSEMIDE [Concomitant]
  8. LEXATIN                            /00424801/ [Concomitant]
  9. PARACETAMOL [Concomitant]
  10. PARIET [Concomitant]
  11. SEPTRIN [Concomitant]
  12. ASPIRIN [Concomitant]
  13. CALCIFEDIOL [Concomitant]
  14. ZOLPIDEM [Concomitant]

REACTIONS (1)
  - Cardiac failure [Recovered/Resolved]
